FAERS Safety Report 10609865 (Version 1)
Quarter: 2014Q4

REPORT INFORMATION
  Report Type: Spontaneous
  Country: JP (occurrence: JP)
  Receive Date: 20141126
  Receipt Date: 20141126
  Transmission Date: 20150529
  Serious: Yes (Hospitalization)
  Sender: FDA-Public Use
  Company Number: JP-SA-2014SA160812

PATIENT
  Age: 84 Year
  Sex: Male

DRUGS (1)
  1. INSULIN GLULISINE [Suspect]
     Active Substance: INSULIN GLULISINE
     Indication: TYPE 2 DIABETES MELLITUS
     Dosage: 8 UNITS PER MEAL.
     Route: 065

REACTIONS (3)
  - Anti-insulin antibody positive [Unknown]
  - Insulin resistance [Unknown]
  - Hypoglycaemia [Unknown]
